FAERS Safety Report 25965707 (Version 1)
Quarter: 2025Q4

REPORT INFORMATION
  Report Type: Spontaneous
  Country: US (occurrence: US)
  Receive Date: 20251027
  Receipt Date: 20251027
  Transmission Date: 20260118
  Serious: Yes (Death)
  Sender: DERMARITE INDUSTRIES
  Company Number: US-DERMARITE INDUSTRIES, LLC.-2025-DER-US000076

PATIENT

DRUGS (3)
  1. ZINC ACETATE [Suspect]
     Active Substance: ZINC ACETATE
     Indication: Product used for unknown indication
     Dosage: UNKNOWN
     Route: 065
  2. ALOE [Suspect]
     Active Substance: ALOE
     Indication: Product used for unknown indication
     Dosage: UNKNOWN
     Route: 065
  3. PERIGIENE [Suspect]
     Active Substance: CHLOROXYLENOL
     Indication: Product used for unknown indication
     Dosage: UNKNOWN
     Route: 065

REACTIONS (1)
  - Illness [Fatal]
